FAERS Safety Report 7826951-3 (Version None)
Quarter: 2011Q4

REPORT INFORMATION
  Report Type: 
  Country: None (occurrence: None)
  Receive Date: 20111020
  Receipt Date: 20111011
  Transmission Date: 20120403
  Serious: Yes (Other)
  Sender: FDA-Public Use
  Company Number: BR-JNJFOC-20111006925

PATIENT
  Age: 52 Year
  Sex: Female
  Weight: 74 kg

DRUGS (4)
  1. HALDOL [Suspect]
     Route: 065
  2. HYDROCHLOROTHIAZIDE [Concomitant]
     Indication: HYPERTENSION
     Route: 065
     Dates: start: 20110401
  3. HALDOL [Suspect]
     Indication: BIPOLAR I DISORDER
     Route: 065
  4. LANSOPRAZOLE [Concomitant]
     Indication: GASTRITIS
     Route: 065
     Dates: start: 20100101

REACTIONS (4)
  - DYSKINESIA [None]
  - DYSPNOEA [None]
  - THROAT TIGHTNESS [None]
  - LOGORRHOEA [None]
